FAERS Safety Report 7911340-3 (Version None)
Quarter: 2011Q4

REPORT INFORMATION
  Report Type: 
  Country: None (occurrence: None)
  Receive Date: 20111114
  Receipt Date: 20111107
  Transmission Date: 20120403
  Serious: Yes (Hospitalization, Other)
  Sender: FDA-Public Use
  Company Number: US-TEVA-308258USA

PATIENT
  Age: 41 Year
  Sex: Female

DRUGS (1)
  1. VERAPAMIL [Suspect]

REACTIONS (14)
  - ARTERIAL THROMBOSIS [None]
  - VENTRICULAR EXTRASYSTOLES [None]
  - RENAL FAILURE [None]
  - RESPIRATORY FAILURE [None]
  - METABOLIC ACIDOSIS [None]
  - SINUS BRADYCARDIA [None]
  - SUICIDE ATTEMPT [None]
  - INTENTIONAL OVERDOSE [None]
  - SINUS TACHYCARDIA [None]
  - PNEUMATOSIS INTESTINALIS [None]
  - HYPOXIA [None]
  - LEUKOCYTOSIS [None]
  - COLITIS ISCHAEMIC [None]
  - ATRIOVENTRICULAR BLOCK [None]
